FAERS Safety Report 13495834 (Version 3)
Quarter: 2018Q1

REPORT INFORMATION
  Report Type: Spontaneous
  Country: DE (occurrence: DE)
  Receive Date: 20170428
  Receipt Date: 20180228
  Transmission Date: 20180508
  Serious: Yes (Other)
  Sender: FDA-Public Use
  Company Number: DE-PFIZER INC-2016259625

PATIENT
  Age: 70 Year
  Sex: Male

DRUGS (7)
  1. CANDESARTAN. [Concomitant]
     Active Substance: CANDESARTAN
     Dosage: 16 MG, 2X/DAY (IN THE MORNING AND IN THE EVENING)
  2. PANTOPRAZOLE [Concomitant]
     Active Substance: PANTOPRAZOLE
     Dosage: UNK
  3. AMLODIPINE [Concomitant]
     Active Substance: AMLODIPINE BESYLATE
     Dosage: 10 MG, 1X/DAY (IN THE MORNING)
  4. INSPRA [Suspect]
     Active Substance: EPLERENONE
     Dosage: 25 MG, ALTERNATE DAY (EVERY OTHER DAY)
     Dates: start: 20160421
  5. TAVOR (LORAZEPAM) [Concomitant]
     Active Substance: LORAZEPAM
     Dosage: 1 MG, 2X/DAY
  6. PRADAXA [Concomitant]
     Active Substance: DABIGATRAN ETEXILATE MESYLATE
     Dosage: 150 MG, 2X/DAY (IN THE MORNING AND IN THE EVENING)
  7. PRAVASTATIN. [Concomitant]
     Active Substance: PRAVASTATIN
     Dosage: 10 MG, 1X/DAY (IN THE EVENING)

REACTIONS (12)
  - Intestinal haemorrhage [Unknown]
  - Blood glucose increased [Unknown]
  - White blood cell count decreased [Unknown]
  - Lyme disease [Unknown]
  - Blood selenium decreased [Unknown]
  - Ubiquinone decreased [Unknown]
  - Peripheral swelling [Unknown]
  - Haemoglobin decreased [Unknown]
  - Glomerular filtration rate decreased [Unknown]
  - Abnormal faeces [Unknown]
  - Haematocrit decreased [Unknown]
  - Manganese increased [Unknown]

NARRATIVE: CASE EVENT DATE: 2016
